FAERS Safety Report 8369030-1 (Version None)
Quarter: 2012Q2

REPORT INFORMATION
  Report Type: 
  Country: None (occurrence: None)
  Receive Date: 20120518
  Receipt Date: 20120426
  Transmission Date: 20120825
  Serious: Yes (Other)
  Sender: FDA-Public Use
  Company Number: US-ROCHE-1064437

PATIENT
  Sex: Female

DRUGS (3)
  1. ACTEMRA [Suspect]
     Dates: start: 20120127
  2. ENBREL [Concomitant]
  3. ACTEMRA [Suspect]
     Indication: RHEUMATOID ARTHRITIS
     Dosage: HELD FOR 3 MONTHS
     Dates: start: 20111021

REACTIONS (2)
  - BACK PAIN [None]
  - SURGERY [None]
